FAERS Safety Report 6805800-6 (Version None)
Quarter: 2010Q2

REPORT INFORMATION
  Report Type: 
  Country: None (occurrence: None)
  Receive Date: 20100629
  Receipt Date: 20071019
  Transmission Date: 20101027
  Serious: No
  Sender: FDA-Public Use
  Company Number: US-PFIZER INC-2007088106

PATIENT
  Sex: Female

DRUGS (2)
  1. ZYVOX [Suspect]
     Indication: POSTOPERATIVE WOUND INFECTION
     Dates: start: 20071001
  2. ZYVOX [Suspect]
     Indication: STAPHYLOCOCCAL INFECTION

REACTIONS (1)
  - TONGUE DISCOLOURATION [None]
